FAERS Safety Report 7591658-7 (Version None)
Quarter: 2011Q3

REPORT INFORMATION
  Report Type: 
  Country: None (occurrence: None)
  Receive Date: 20110706
  Receipt Date: 20090930
  Transmission Date: 20111222
  Serious: Yes (Death, Hospitalization, Other)
  Sender: FDA-Public Use
  Company Number: US-BAYER-200934614NA

PATIENT
  Age: 65 Year
  Sex: Male
  Weight: 63.492 kg

DRUGS (22)
  1. PROPOFOL [Concomitant]
     Dosage: UNK
     Route: 042
     Dates: start: 20061212, end: 20061212
  2. TRASYLOL [Suspect]
     Dosage: 200ML LOADING DOSE
     Route: 042
     Dates: start: 20061212, end: 20061212
  3. TRASYLOL [Suspect]
     Dosage: 50 ML/HR
     Route: 042
     Dates: start: 20061212, end: 20061212
  4. VYTORIN [Concomitant]
     Dosage: 10/40MG DAILY
     Route: 048
     Dates: start: 20061204
  5. RED BLOOD CELLS [Concomitant]
     Dosage: 2 U, ONCE
     Route: 042
     Dates: start: 20061212, end: 20061212
  6. PERCOCET [Concomitant]
     Indication: PAIN
     Dosage: 1-2 TABS EVERY 4 HOURS AS NEEDED
     Route: 048
     Dates: start: 20061205
  7. TRASYLOL [Suspect]
     Indication: MITRAL VALVE REPAIR
     Dosage: 1 ML, ONCE, TEST DOSE
     Route: 042
     Dates: start: 20061212, end: 20061212
  8. ACETAMINOPHEN [Concomitant]
     Indication: PAIN
     Dosage: 650 MG EVERY 4 HOURS AS NEEDED
     Route: 048
     Dates: start: 20061205
  9. HYDROCHLOROTHIAZIDE [Concomitant]
     Dosage: 12.5 MG, QD
     Route: 048
     Dates: start: 20061204
  10. PROTAMINE SULFATE [Concomitant]
     Dosage: UNK
     Route: 042
     Dates: start: 20061212, end: 20061212
  11. ACETYLSALICYLIC ACID SRT [Concomitant]
     Dosage: 325 MG, QD
     Route: 048
     Dates: start: 20061205
  12. MORPHINE [Concomitant]
     Indication: PAIN
     Dosage: 2-4MG EVERY 2 HOURS AS NEEDED
     Route: 042
     Dates: start: 20061205
  13. HEPARIN [Concomitant]
     Dosage: 10 ML, UNK
     Route: 042
     Dates: start: 20061212, end: 20061212
  14. LASIX [Concomitant]
     Dosage: 40 MG, UNK
     Route: 042
     Dates: start: 20061212, end: 20061212
  15. EPINEPHRINE [Concomitant]
     Dosage: UNK
     Route: 042
     Dates: start: 20061212, end: 20061212
  16. PLAVIX [Concomitant]
     Dosage: 75 MG, QD
     Route: 048
     Dates: start: 20061204
  17. MORPHINE [Concomitant]
     Dosage: UNK
     Route: 042
     Dates: start: 20061212, end: 20061212
  18. CONTRAST MEDIA [Concomitant]
     Indication: CATHETERISATION CARDIAC
     Dosage: UNK
     Dates: start: 20061205
  19. TRASYLOL [Suspect]
     Indication: CORONARY ARTERY BYPASS
     Dosage: 200 ML PRIME
     Dates: start: 20061212, end: 20061212
  20. BENICAR HCT [Concomitant]
     Dosage: 40/12.5MG DAILY
     Route: 048
     Dates: start: 20061204
  21. ANCEF [Concomitant]
     Dosage: UNK
     Route: 042
     Dates: start: 20061212, end: 20061212
  22. CEFAZOLIN [Concomitant]
     Dosage: 1 G, UNK
     Route: 042
     Dates: start: 20061212

REACTIONS (6)
  - RENAL FAILURE ACUTE [None]
  - PAIN [None]
  - INJURY [None]
  - RENAL FAILURE [None]
  - RENAL INJURY [None]
  - UNEVALUABLE EVENT [None]
